FAERS Safety Report 6882986-9 (Version None)
Quarter: 2010Q3

REPORT INFORMATION
  Report Type: 
  Country: None (occurrence: None)
  Receive Date: 20100727
  Receipt Date: 20100716
  Transmission Date: 20110219
  Serious: Yes (Hospitalization, Other)
  Sender: FDA-Public Use
  Company Number: SA-AMGEN-KDL425091

PATIENT
  Sex: Male

DRUGS (5)
  1. NEUPOGEN [Suspect]
     Indication: NEUTROPENIA
     Route: 058
  2. PARACETAMOL [Concomitant]
     Route: 048
  3. PENICILLIN NOS [Concomitant]
     Route: 048
  4. IRON [Concomitant]
     Route: 048
  5. GM-CSF [Concomitant]
     Route: 058

REACTIONS (4)
  - CATARACT [None]
  - DRUG INEFFECTIVE [None]
  - OSTEOPENIA [None]
  - RESPIRATORY TRACT INFECTION [None]
